FAERS Safety Report 14506503 (Version 3)
Quarter: 2019Q2

REPORT INFORMATION
  Report Type: Spontaneous
  Country: IE (occurrence: IE)
  Receive Date: 20180208
  Receipt Date: 20190416
  Transmission Date: 20190711
  Serious: Yes (Hospitalization, Disabling, Congenital Anomaly)
  Sender: FDA-Public Use
  Company Number: IE-ABBVIE-18P-229-2250252-00

PATIENT
  Sex: Female

DRUGS (1)
  1. EPILIM [Suspect]
     Active Substance: VALPROATE SODIUM
     Indication: MATERNAL EXPOSURE TIMING UNSPECIFIED
     Route: 064

REACTIONS (23)
  - Physical disability [Unknown]
  - Astigmatism [Unknown]
  - Anal incontinence [Unknown]
  - Intentional self-injury [Unknown]
  - Developmental delay [Unknown]
  - Motor developmental delay [Unknown]
  - Mental disorder [Unknown]
  - Suicidal ideation [Unknown]
  - Foetal exposure during pregnancy [Unknown]
  - Dyslexia [Unknown]
  - Sensory disturbance [Unknown]
  - Anxiety [Unknown]
  - Speech disorder developmental [Unknown]
  - Autism spectrum disorder [Unknown]
  - Cytogenetic abnormality [Unknown]
  - Memory impairment [Unknown]
  - Foetal anticonvulsant syndrome [Unknown]
  - Dyspraxia [Unknown]
  - Attention deficit/hyperactivity disorder [Unknown]
  - Intentional self-injury [Unknown]
  - Hallucination [Unknown]
  - Sinus tachycardia [Unknown]
  - Disturbance in attention [Unknown]

NARRATIVE: CASE EVENT DATE: 2013
